FAERS Safety Report 6159674-X (Version None)
Quarter: 2009Q2

REPORT INFORMATION
  Report Type: 
  Country: None (occurrence: None)
  Receive Date: 20090415
  Receipt Date: 20090403
  Transmission Date: 20091009
  Serious: Yes (Hospitalization)
  Sender: FDA-Public Use
  Company Number: 006068

PATIENT
  Age: 76 Year
  Sex: Male

DRUGS (3)
  1. PLETAL [Suspect]
     Indication: CAROTID ARTERY STENOSIS
     Dosage: 100 MG, DAILY, DOSE ORAL
     Route: 048
  2. WARFARIN SODIUM [Concomitant]
  3. NSAID'S [Concomitant]

REACTIONS (6)
  - ABDOMINAL DISTENSION [None]
  - ANAEMIA [None]
  - COAGULATION TIME PROLONGED [None]
  - INFECTION [None]
  - INFLAMMATION [None]
  - MUSCLE HAEMORRHAGE [None]
